FAERS Safety Report 21177735 (Version 1)
Quarter: 2022Q3

REPORT INFORMATION
  Report Type: Spontaneous
  Country: US (occurrence: US)
  Receive Date: 20220805
  Receipt Date: 20220805
  Transmission Date: 20221027
  Serious: No
  Sender: FDA-Public Use
  Company Number: US-Albireo AB-2022ALB000043

PATIENT
  Age: 3 Year
  Sex: Male
  Weight: 12 kg

DRUGS (3)
  1. BYLVAY [Suspect]
     Active Substance: ODEVIXIBAT
     Indication: Progressive familial intrahepatic cholestasis
     Route: 048
     Dates: start: 20210903, end: 20220227
  2. BYLVAY [Suspect]
     Active Substance: ODEVIXIBAT
     Route: 048
     Dates: start: 20220303
  3. URSO [Concomitant]
     Active Substance: URSODIOL
     Indication: Liver disorder
     Route: 065

REACTIONS (2)
  - Blood bilirubin increased [Not Recovered/Not Resolved]
  - Epistaxis [Not Recovered/Not Resolved]
